FAERS Safety Report 15637499 (Version 1)
Quarter: 2018Q4

REPORT INFORMATION
  Report Type: Spontaneous
  Country: US (occurrence: US)
  Receive Date: 20181120
  Receipt Date: 20181120
  Transmission Date: 20190205
  Serious: No
  Sender: FDA-Public Use
  Company Number: US-JNJFOC-20180416552

PATIENT
  Age: 68 Year
  Sex: Female

DRUGS (9)
  1. ATORVASTATIN [Concomitant]
     Active Substance: ATORVASTATIN
  2. CLOBETASOL [Concomitant]
     Active Substance: CLOBETASOL
  3. LEVOTHYROXINE. [Concomitant]
     Active Substance: LEVOTHYROXINE
  4. RISPERIDONE. [Concomitant]
     Active Substance: RISPERIDONE
     Route: 065
  5. COLACE [Concomitant]
     Active Substance: DOCUSATE SODIUM
  6. IMBRUVICA [Suspect]
     Active Substance: IBRUTINIB
     Indication: CHRONIC LYMPHOCYTIC LEUKAEMIA
     Route: 048
     Dates: start: 201706
  7. FOLIC ACID. [Concomitant]
     Active Substance: FOLIC ACID
  8. HYDROCHLOROTHIAZIDE. [Concomitant]
     Active Substance: HYDROCHLOROTHIAZIDE
  9. PREDNISOLONE. [Concomitant]
     Active Substance: PREDNISOLONE

REACTIONS (2)
  - Nail discolouration [Recovering/Resolving]
  - Onychoclasis [Recovering/Resolving]

NARRATIVE: CASE EVENT DATE: 20180406
